FAERS Safety Report 12173182 (Version 3)
Quarter: 2017Q4

REPORT INFORMATION
  Report Type: Spontaneous
  Country: FR (occurrence: FR)
  Receive Date: 20160311
  Receipt Date: 20171018
  Transmission Date: 20180320
  Serious: Yes (Hospitalization, Other)
  Sender: FDA-Public Use
  Company Number: FR-PFIZER INC-2016146472

PATIENT
  Age: 50 Year
  Sex: Female

DRUGS (9)
  1. BROMAZEPAM [Concomitant]
     Active Substance: BROMAZEPAM
     Indication: MERYCISM
  2. METHYLPREDNISOLONE SODIUM SUCCINATE. [Suspect]
     Active Substance: METHYLPREDNISOLONE SODIUM SUCCINATE
     Dosage: 1.5 MG/KG, DAILY
     Route: 042
  3. METHYLPREDNISOLONE SODIUM SUCCINATE. [Suspect]
     Active Substance: METHYLPREDNISOLONE SODIUM SUCCINATE
     Dosage: 2 MG/KG, DAILY
     Route: 042
  4. BROMAZEPAM [Concomitant]
     Active Substance: BROMAZEPAM
     Indication: MOOD ALTERED
     Dosage: 6 MG, 1X/DAY (IN THE EVENING)
  5. FINGOLIMOD. [Concomitant]
     Active Substance: FINGOLIMOD
     Indication: RELAPSING-REMITTING MULTIPLE SCLEROSIS
     Dosage: 0.5 MG, 1X/DAY
     Route: 048
  6. BROMAZEPAM [Concomitant]
     Active Substance: BROMAZEPAM
     Indication: FEAR OF DEATH
  7. BROMAZEPAM [Concomitant]
     Active Substance: BROMAZEPAM
     Indication: INSOMNIA
  8. METHYLPREDNISOLONE SODIUM SUCCINATE. [Suspect]
     Active Substance: METHYLPREDNISOLONE SODIUM SUCCINATE
     Indication: RELAPSING-REMITTING MULTIPLE SCLEROSIS
     Dosage: UNK (OVERDOSE)
     Route: 042
  9. METHYLPREDNISOLONE SODIUM SUCCINATE. [Suspect]
     Active Substance: METHYLPREDNISOLONE SODIUM SUCCINATE
     Dosage: 1.5 MG/KG, DAILY
     Route: 042

REACTIONS (2)
  - Overdose [Unknown]
  - Suicidal behaviour [Recovering/Resolving]
